FAERS Safety Report 10712857 (Version 1)
Quarter: 2015Q1

REPORT INFORMATION
  Report Type: Spontaneous
  Country: US (occurrence: None)
  Receive Date: 20150114
  Receipt Date: 20150114
  Transmission Date: 20150721
  Serious: Yes (Disabling)
  Sender: FDA-Public Use
  Company Number: None

PATIENT
  Age: 26 Year
  Sex: Female
  Weight: 83.92 kg

DRUGS (1)
  1. PROGESTERONE. [Suspect]
     Active Substance: PROGESTERONE
     Indication: MENSTRUATION DELAYED
     Dosage: 1 PILL, TAKEN BY MOUTH
     Route: 048
     Dates: start: 20141226, end: 20141226

REACTIONS (11)
  - Gait disturbance [None]
  - Pain [None]
  - Musculoskeletal stiffness [None]
  - Peripheral swelling [None]
  - Insomnia [None]
  - Pain in extremity [None]
  - Arthralgia [None]
  - Back pain [None]
  - Mobility decreased [None]
  - Walking aid user [None]
  - Myalgia [None]

NARRATIVE: CASE EVENT DATE: 20141220
